FAERS Safety Report 7991861-8 (Version None)
Quarter: 2011Q4

REPORT INFORMATION
  Report Type: 
  Country: None (occurrence: None)
  Receive Date: 20111219
  Receipt Date: 20111212
  Transmission Date: 20120403
  Serious: Yes (Other)
  Sender: FDA-Public Use
  Company Number: PHHY2011AU103431

PATIENT
  Sex: Female

DRUGS (5)
  1. GILENYA [Suspect]
     Indication: MULTIPLE SCLEROSIS
     Dosage: 0.5 MG, QD
     Route: 048
     Dates: start: 20110810, end: 20111118
  2. VITAMIN D [Concomitant]
     Indication: SUPPLEMENTATION THERAPY
  3. ALLEGRON [Concomitant]
     Dosage: 1 DF, QD
     Route: 048
     Dates: start: 20110101
  4. OSTELIN [Concomitant]
     Indication: SUPPLEMENTATION THERAPY
     Dosage: 2 DF, QD
     Route: 048
  5. MACRODANTIN [Concomitant]
     Dosage: 1 DF, QD
     Route: 048
     Dates: start: 20090101

REACTIONS (5)
  - T-LYMPHOCYTE COUNT DECREASED [None]
  - CD4 LYMPHOCYTES DECREASED [None]
  - UPPER RESPIRATORY TRACT INFECTION [None]
  - LYMPHOPENIA [None]
  - MALAISE [None]
